FAERS Safety Report 5528897-2 (Version None)
Quarter: 2007Q4

REPORT INFORMATION
  Report Type: 
  Country: None (occurrence: None)
  Receive Date: 20071126
  Receipt Date: 20071024
  Transmission Date: 20080405
  Serious: Yes (Death, Hospitalization)
  Sender: FDA-Public Use
  Company Number: MAMAP-S-20070001

PATIENT
  Age: 54 Year
  Sex: Female

DRUGS (2)
  1. NAVELBINE [Suspect]
     Indication: CERVIX CANCER METASTATIC
     Dosage: 25 MG/M2 IV
     Route: 042
     Dates: start: 20070425, end: 20070425
  2. CISPLATIN [Concomitant]

REACTIONS (8)
  - CARDIAC DISORDER [None]
  - CHEST DISCOMFORT [None]
  - DYSPNOEA [None]
  - EJECTION FRACTION DECREASED [None]
  - ELECTROCARDIOGRAM ST SEGMENT DEPRESSION [None]
  - FATIGUE [None]
  - PERICARDIAL DISEASE [None]
  - SINUS TACHYCARDIA [None]
